FAERS Safety Report 6091282-1 (Version None)
Quarter: 2009Q1

REPORT INFORMATION
  Report Type: 
  Country: None (occurrence: None)
  Receive Date: 20090225
  Receipt Date: 20090216
  Transmission Date: 20090719
  Serious: Yes (Other)
  Sender: FDA-Public Use
  Company Number: GB-AMGEN-US334486

PATIENT

DRUGS (1)
  1. ENBREL [Suspect]
     Indication: DRUG USE FOR UNKNOWN INDICATION
     Dosage: 50 MG PREFILLED SYRINGE (FREQUENCY UNKNOWN)
     Route: 058

REACTIONS (3)
  - GENERALISED ERYTHEMA [None]
  - HYPOAESTHESIA [None]
  - PARAESTHESIA [None]
